FAERS Safety Report 8470796-0 (Version None)
Quarter: 2012Q2

REPORT INFORMATION
  Report Type: 
  Country: None (occurrence: None)
  Receive Date: 20120627
  Receipt Date: 20120622
  Transmission Date: 20120825
  Serious: Yes (Other)
  Sender: FDA-Public Use
  Company Number: US-TEVA-344867USA

PATIENT

DRUGS (1)
  1. ESCITALOPRAM [Suspect]

REACTIONS (9)
  - SYNCOPE [None]
  - HYPERHIDROSIS [None]
  - DIZZINESS [None]
  - JOINT INJURY [None]
  - MUSCULAR WEAKNESS [None]
  - HEAD INJURY [None]
  - LOSS OF CONSCIOUSNESS [None]
  - PALPITATIONS [None]
  - FALL [None]
